FAERS Safety Report 6653611-7 (Version None)
Quarter: 2010Q1

REPORT INFORMATION
  Report Type: 
  Country: None (occurrence: None)
  Receive Date: 20100326
  Receipt Date: 20100318
  Transmission Date: 20100710
  Serious: Yes (Other)
  Sender: FDA-Public Use
  Company Number: CA-BAYER-201016995NA

PATIENT
  Age: 59 Year
  Sex: Male

DRUGS (7)
  1. SORAFENIB [Suspect]
     Indication: METASTATIC RENAL CELL CARCINOMA
     Dosage: UNIT DOSE: 200 MG
     Route: 048
     Dates: start: 20091125, end: 20100217
  2. ATENOLOL [Concomitant]
     Dosage: TOTAL DAILY DOSE: 200 MG
  3. SIMVASTATIN [Concomitant]
     Dosage: TOTAL DAILY DOSE: 50 MG
  4. NORVASC [Concomitant]
     Dosage: TOTAL DAILY DOSE: 5 MG
  5. INNOHEP [Concomitant]
     Dosage: TOTAL DAILY DOSE: 0.7 ML
  6. EUROFER [Concomitant]
     Dosage: TOTAL DAILY DOSE: 100 MG
  7. SUPPLEMENTS [Concomitant]

REACTIONS (1)
  - PROCEDURAL COMPLICATION [None]
